FAERS Safety Report 9514774 (Version 1)
Quarter: 2013Q3

REPORT INFORMATION
  Report Type: Spontaneous
  Country: US (occurrence: US)
  Receive Date: 20130911
  Receipt Date: 20130911
  Transmission Date: 20140515
  Serious: No
  Sender: FDA-Public Use
  Company Number: US-BAYER-2013-108197

PATIENT
  Sex: Female

DRUGS (1)
  1. BETASERON [Suspect]

REACTIONS (5)
  - Muscular weakness [None]
  - Hyperhidrosis [None]
  - Feeling hot [None]
  - Dizziness [None]
  - Feeling abnormal [None]
